FAERS Safety Report 7902102-1 (Version None)
Quarter: 2011Q4

REPORT INFORMATION
  Report Type: 
  Country: None (occurrence: None)
  Receive Date: 20111108
  Receipt Date: 20111027
  Transmission Date: 20120403
  Serious: Yes (Hospitalization)
  Sender: FDA-Public Use
  Company Number: US-BAYER-2011-063753

PATIENT
  Age: 35 Year
  Sex: Female
  Weight: 73 kg

DRUGS (10)
  1. YASMIN [Suspect]
     Indication: CONTRACEPTION
     Dosage: UNK
     Dates: start: 20020901, end: 20021201
  2. ZYRTEC [Concomitant]
     Indication: URTICARIA
  3. SOMA [Concomitant]
     Indication: MUSCULOSKELETAL CHEST PAIN
  4. YASMIN [Suspect]
     Indication: ENDOMETRIOSIS
  5. ZYRTEC [Concomitant]
     Indication: MULTIPLE ALLERGIES
     Dosage: UNK
     Dates: start: 19950101
  6. RESTORIL [Concomitant]
  7. XANAX [Concomitant]
  8. ALPRAZOLAM [Concomitant]
     Indication: ANXIETY
     Dosage: UNK
     Dates: start: 19990101
  9. VICODIN [Concomitant]
     Indication: MUSCULOSKELETAL CHEST PAIN
  10. ZOLOFT [Concomitant]
     Indication: DEPRESSION
     Dosage: UNK
     Dates: start: 20000101, end: 20060101

REACTIONS (3)
  - PULMONARY EMBOLISM [None]
  - INJURY [None]
  - EMOTIONAL DISTRESS [None]
